FAERS Safety Report 17404007 (Version 1)
Quarter: 2020Q1

REPORT INFORMATION
  Report Type: Spontaneous
  Country: US (occurrence: US)
  Receive Date: 20200211
  Receipt Date: 20200211
  Transmission Date: 20200409
  Serious: Yes (Other)
  Sender: FDA-Public Use
  Company Number: US-BAYER-2020-022608

PATIENT

DRUGS (3)
  1. ASPIRIN (CARDIO) [Suspect]
     Active Substance: ASPIRIN
  2. ELIQUIS [Interacting]
     Active Substance: APIXABAN
  3. PLAVIX [Interacting]
     Active Substance: CLOPIDOGREL BISULFATE

REACTIONS (2)
  - Gastrointestinal haemorrhage [Unknown]
  - Labelled drug-drug interaction medication error [None]
